FAERS Safety Report 4353115-0 (Version None)
Quarter: 2004Q2

REPORT INFORMATION
  Report Type: 
  Country: None (occurrence: None)
  Receive Date: 20040429
  Receipt Date: 20040420
  Transmission Date: 20050107
  Serious: Yes (Hospitalization)
  Sender: FDA-Public Use
  Company Number: 2004GB00052

PATIENT
  Age: 57 Year
  Sex: Female

DRUGS (14)
  1. IRESSA [Suspect]
     Indication: OESOPHAGEAL ADENOCARCINOMA
     Dosage: 500 MG QD PO
     Route: 048
  2. LOPERAMIDE HCL [Concomitant]
  3. FERROUS SULFATE TAB [Concomitant]
  4. ACETAMINOPHEN [Concomitant]
  5. QUININE SULPHATE [Concomitant]
  6. LANSOPRAZOLE [Concomitant]
  7. GAVISCON [Concomitant]
  8. CETIRIZINE HCL [Concomitant]
  9. CYCLIZINE [Concomitant]
  10. FENTANYL [Concomitant]
  11. BUSCOPAN [Concomitant]
  12. CO-DANTHRUSATE [Concomitant]
  13. LEVOPROMAZIN [Concomitant]
  14. BECONASE [Concomitant]

REACTIONS (2)
  - CIRCULATORY COLLAPSE [None]
  - GASTROENTERITIS [None]
